FAERS Safety Report 19243166 (Version 2)
Quarter: 2021Q2

REPORT INFORMATION
  Report Type: Spontaneous
  Country: IN (occurrence: IN)
  Receive Date: 20210511
  Receipt Date: 20210524
  Transmission Date: 20210717
  Serious: Yes (Death, Other)
  Sender: FDA-Public Use
  Company Number: IN-PFIZER INC-2020482080

PATIENT
  Age: 68 Year
  Sex: Female

DRUGS (2)
  1. PALBACE [Suspect]
     Active Substance: PALBOCICLIB
     Dosage: 125 MG, CYCLIC (FOR 21 DAYS F/B 1 WEEK OFF TO BE TAKEN WITH FOOD, ORAL 21 DAYS)
     Route: 048
     Dates: start: 20201120
  2. PALBACE [Suspect]
     Active Substance: PALBOCICLIB
     Indication: BREAST CANCER METASTATIC
     Dosage: 125 MG, 1X/DAY
     Route: 048
     Dates: start: 20200911, end: 20201003

REACTIONS (7)
  - Platelet count decreased [Unknown]
  - Neoplasm progression [Unknown]
  - Death [Fatal]
  - White blood cell count decreased [Unknown]
  - Total lung capacity abnormal [Unknown]
  - Liver disorder [Unknown]
  - Pneumonia [Recovered/Resolved]

NARRATIVE: CASE EVENT DATE: 2020
